FAERS Safety Report 20426888 (Version 11)
Quarter: 2023Q2

REPORT INFORMATION
  Report Type: Report from Study
  Country: GB (occurrence: GB)
  Receive Date: 20220204
  Receipt Date: 20230623
  Transmission Date: 20230722
  Serious: Yes (Hospitalization, Other)
  Sender: FDA-Public Use
  Company Number: GB-CELLTRION INC.-2022GB000905

PATIENT

DRUGS (81)
  1. TRASTUZUMAB [Suspect]
     Active Substance: TRASTUZUMAB
     Indication: Breast cancer metastatic
     Dosage: 651 MG, EVERY 3 WEEKS
     Route: 042
     Dates: start: 20171129, end: 20210903
  2. TRASTUZUMAB [Suspect]
     Active Substance: TRASTUZUMAB
     Dosage: 651 MG, EVERY 3 WEEKS
     Route: 042
     Dates: start: 20171129, end: 20210903
  3. DOCETAXEL [Suspect]
     Active Substance: DOCETAXEL
     Indication: Breast cancer metastatic
     Dosage: 148 MILLIGRAM EVERY 3 WEEKS
     Route: 042
     Dates: start: 20171108, end: 20180131
  4. PERTUZUMAB [Suspect]
     Active Substance: PERTUZUMAB
     Indication: Breast cancer metastatic
     Dosage: 600 MILLIGRAM, EVERY 3 WEEKS
     Route: 058
     Dates: start: 20211015
  5. PERTUZUMAB [Suspect]
     Active Substance: PERTUZUMAB
     Dosage: 840 MILLIGRAM EVERY 3 WEEKS
     Route: 042
     Dates: start: 20181120
  6. PERTUZUMAB [Suspect]
     Active Substance: PERTUZUMAB
     Dosage: 840 MG EVERY 3 WEEKS
     Route: 042
     Dates: start: 20171108, end: 20171129
  7. PERTUZUMAB [Suspect]
     Active Substance: PERTUZUMAB
     Dosage: 420 MG EVERY 3 WEEKS
     Route: 042
     Dates: start: 20171129, end: 20210924
  8. TRASTUZUMAB [Suspect]
     Active Substance: TRASTUZUMAB
     Indication: Breast cancer metastatic
     Dosage: 600 MG, EVERY 3 WEEKS (CUMULATIVE DOSE: 371.42856 MG)
     Route: 058
     Dates: start: 20211015
  9. TRASTUZUMAB [Suspect]
     Active Substance: TRASTUZUMAB
     Dosage: 600 MG, EVERY 3 WEEKS (CUMULATIVE DOSE: 371.42856 MG)
     Route: 058
     Dates: start: 20211015
  10. TRASTUZUMAB [Suspect]
     Active Substance: TRASTUZUMAB
     Dosage: 600 MG, EVERY 3 WEEKS600 MG, EVERY 3 WEEKS (CUMULATIVE DOSE: 40827.383 MG)
     Route: 058
     Dates: start: 20171129
  11. TRASTUZUMAB [Suspect]
     Active Substance: TRASTUZUMAB
     Dosage: 600 MG, EVERY 3 WEEKS (CUMULATIVE DOSE: 40827.383 MG)
     Route: 058
     Dates: start: 20171129
  12. TRASTUZUMAB [Suspect]
     Active Substance: TRASTUZUMAB
     Indication: Breast cancer metastatic
     Dosage: 882 MG, EVERY 3 WEEKS
     Route: 042
     Dates: start: 20171108, end: 20171129
  13. TRASTUZUMAB [Suspect]
     Active Substance: TRASTUZUMAB
     Dosage: 651 MG, EVERY 3 WEEKS
     Route: 042
     Dates: start: 20171108, end: 20210903
  14. AMITRIPTYLINE [Concomitant]
     Active Substance: AMITRIPTYLINE
  15. BARICITINIB [Concomitant]
     Active Substance: BARICITINIB
  16. BUTYLSCOPOLAMINE BROMIDE [Concomitant]
     Active Substance: BUTYLSCOPOLAMINE BROMIDE
  17. CALCIUM CARBONATE [Concomitant]
     Active Substance: CALCIUM CARBONATE
     Dosage: 2 DOSAGE FORM, EVERY 0.5 DAY (DOSAGE TEXT: 1,5G + 400 UNITS)
     Route: 048
  18. CALCIUM CARBONATE [Concomitant]
     Active Substance: CALCIUM CARBONATE
     Dosage: 1 DF, 0.5 PER DAY (1,5G + 400 UNITS)
     Route: 048
  19. CALCIUM CARBONATE\CHOLECALCIFEROL [Concomitant]
     Active Substance: CALCIUM CARBONATE\CHOLECALCIFEROL
  20. CANDESARTAN [Concomitant]
     Active Substance: CANDESARTAN
  21. CIPROFLOXACIN [Concomitant]
     Active Substance: CIPROFLOXACIN
     Dosage: UNK
  22. BECLOMETHASONE DIPROPIONATE [Concomitant]
     Active Substance: BECLOMETHASONE DIPROPIONATE
     Dosage: 2, QD (DOSGAE TEXT: 2 PUFF)
     Route: 065
  23. BECLOMETHASONE DIPROPIONATE [Concomitant]
     Active Substance: BECLOMETHASONE DIPROPIONATE
     Dosage: 0.5 DAYS (2 PUFF;)
  24. CLONAZEPAM [Concomitant]
     Active Substance: CLONAZEPAM
     Dosage: 500 MILLIGRAM, QD
     Route: 048
  25. CLONAZEPAM [Concomitant]
     Active Substance: CLONAZEPAM
     Dosage: 250 MILLIGRAM, QD
     Route: 048
     Dates: start: 202006
  26. CLOTRIMAZOLE [Concomitant]
     Active Substance: CLOTRIMAZOLE
  27. CHOLECALCIFEROL [Concomitant]
     Active Substance: CHOLECALCIFEROL
  28. CYCLIZINE [Concomitant]
     Active Substance: CYCLIZINE
  29. DOXYCYCLINE [Concomitant]
     Active Substance: DOXYCYCLINE
  30. DENOSUMAB [Concomitant]
     Active Substance: DENOSUMAB
  31. DEXAMETHASONE [Concomitant]
     Active Substance: DEXAMETHASONE
  32. DUORESP SPIROMAX [BUDESONIDE;FORMOTEROL FUMARATE DIHYDRATE] [Concomitant]
     Dosage: 320 MG, INHALE ONE PUFF TWICE DAILY
     Route: 050
  33. ENOXAPARIN [Concomitant]
     Active Substance: ENOXAPARIN
  34. ERYTHROMYCIN [Concomitant]
     Active Substance: ERYTHROMYCIN
     Indication: Vascular device infection
     Dosage: 500 MG, EVERY 0.25 DAY
     Route: 048
     Dates: start: 2020, end: 202007
  35. FLOXACILLIN [Concomitant]
     Active Substance: FLUCLOXACILLIN
  36. GENTAMICIN [Concomitant]
     Active Substance: GENTAMICIN
  37. GLYCEROL SUPPOSITORIES B.P. [Concomitant]
  38. BUTYLSCOPOLAMINE BROMIDE [Concomitant]
     Active Substance: BUTYLSCOPOLAMINE BROMIDE
     Dosage: 10 MG, TAKE 1 AT BED TIME
     Route: 048
  39. IPRATROPIUM [Concomitant]
     Active Substance: IPRATROPIUM
  40. LACTULOSE [Concomitant]
     Active Substance: LACTULOSE
     Dosage: 20 MILLILITER, QD
     Route: 048
  41. LACTULOSE [Concomitant]
     Active Substance: LACTULOSE
     Dosage: 10 MILLILITER, EVERY 0.5 DAY
     Route: 048
  42. LANSOPRAZOLE [Concomitant]
     Active Substance: LANSOPRAZOLE
     Dosage: ENTERIC COTED, TAKE ONE EACH MORNING
     Route: 065
  43. LINEZOLID [Concomitant]
     Active Substance: LINEZOLID
     Indication: Vascular device infection
     Dosage: 600 MILLIGRAM, EVERY 0.5 DAY
     Route: 048
     Dates: start: 20191125, end: 20191130
  44. MEROPENEM [Concomitant]
     Active Substance: MEROPENEM
  45. METFORMIN [Concomitant]
     Active Substance: METFORMIN HYDROCHLORIDE
     Dosage: 2000 MILLIGRAM, QD
     Route: 048
  46. METFORMIN [Concomitant]
     Active Substance: METFORMIN HYDROCHLORIDE
     Dosage: 1000 MILLIGRAM, QD
     Route: 065
  47. METFORMIN [Concomitant]
     Active Substance: METFORMIN HYDROCHLORIDE
     Dosage: 500 MILLIGRAM EVERY 0.25 DAY
     Route: 065
  48. METOCLOPRAMIDE [Concomitant]
     Active Substance: METOCLOPRAMIDE
     Dosage: DOSE OF 3, QD
     Route: 048
  49. METOCLOPRAMIDE [Concomitant]
     Active Substance: METOCLOPRAMIDE
     Dosage: UNK, EVERY 0.33 DAY
     Route: 048
  50. METRONIDAZOLE [Concomitant]
     Active Substance: METRONIDAZOLE
  51. MIRTAZAPINE [Concomitant]
     Active Substance: MIRTAZAPINE
     Dosage: UNK
  52. MIRTAZAPINE [Concomitant]
     Active Substance: MIRTAZAPINE
     Dosage: UNK
  53. MIRTAZAPINE [Concomitant]
     Active Substance: MIRTAZAPINE
     Dosage: UNK
  54. MORPHINE [Concomitant]
     Active Substance: MORPHINE
     Indication: Vomiting
     Dosage: 5 MILLIGRAM
     Route: 042
     Dates: start: 20181002, end: 20181002
  55. MORPHINE [Concomitant]
     Active Substance: MORPHINE
     Indication: Diarrhoea
  56. NITROFURANTOIN [Concomitant]
     Active Substance: NITROFURANTOIN
     Indication: Urinary tract infection
     Dosage: 50 MILLIGRAM, EVERY 0.25 DAY
     Route: 048
     Dates: start: 20181103, end: 20181109
  57. NITROFURANTOIN [Concomitant]
     Active Substance: NITROFURANTOIN
     Dosage: UNK
  58. SODIUM CHLORIDE [Concomitant]
     Active Substance: SODIUM CHLORIDE
  59. NOVORAPID [Concomitant]
     Active Substance: INSULIN ASPART
  60. OMEPRAZOLE [Concomitant]
     Active Substance: OMEPRAZOLE
     Dosage: 40 MILLIGRAM, QD
     Route: 048
     Dates: start: 201710
  61. ONDANSETRON [Concomitant]
     Active Substance: ONDANSETRON
     Indication: Vomiting
     Dosage: 4 MILLIGRAM
     Route: 042
     Dates: start: 20181002, end: 20181002
  62. ONDANSETRON [Concomitant]
     Active Substance: ONDANSETRON
     Indication: Diarrhoea
  63. OSELTAMIVIR [Concomitant]
     Active Substance: OSELTAMIVIR
     Dosage: 2 DOSE EVERY 1 DAY
     Route: 065
  64. OSELTAMIVIR [Concomitant]
     Active Substance: OSELTAMIVIR
     Dosage: UNK, EVERY 0.5 DAY
     Route: 065
  65. OXYCODONE [Concomitant]
     Active Substance: OXYCODONE
     Dosage: UNK
  66. OXYCODONE [Concomitant]
     Active Substance: OXYCODONE
     Indication: Pain
     Dosage: 220 MILLIGRAM, EVERY 1 DAY
     Route: 048
  67. OXYCODONE [Concomitant]
     Active Substance: OXYCODONE
     Dosage: 110 MILLIGRAM, EVERY 0.5 DAY
     Route: 048
  68. PREGABALIN [Concomitant]
     Active Substance: PREGABALIN
  69. PROMETHAZINE HYDROCHLORIDE [Concomitant]
     Active Substance: PROMETHAZINE HYDROCHLORIDE
  70. QUETIAPINE [Concomitant]
     Active Substance: QUETIAPINE
  71. QUETIAPINE [Concomitant]
     Active Substance: QUETIAPINE
     Indication: Depressed mood
     Dosage: 150 MILLIGRAM, QD
     Route: 048
     Dates: start: 2020
  72. QUETIAPINE [Concomitant]
     Active Substance: QUETIAPINE
     Dosage: 100 MILLIGRAM, QD
     Route: 048
     Dates: end: 2020
  73. RAMIPRIL [Concomitant]
     Active Substance: RAMIPRIL
     Dosage: 1.25 MILLIGRAM, QD
     Route: 048
  74. ALBUTEROL [Concomitant]
     Active Substance: ALBUTEROL
     Dosage: 1, AS NECESSARY(DOSAGE TEXT: 2 PUFF)
     Route: 065
  75. ALBUTEROL [Concomitant]
     Active Substance: ALBUTEROL
     Dosage: (DOSAGE TEXT: 2 PUFF)
     Route: 065
  76. SIMVASTATIN [Concomitant]
     Active Substance: SIMVASTATIN
     Dosage: 40 MILLIGRAM, QD
     Route: 048
  77. SODIUM PICOSULFATE [Concomitant]
     Active Substance: SODIUM PICOSULFATE
     Indication: Constipation
     Dosage: 1, QD (DOSAGE TEXT: 10 OTHER)
     Route: 048
  78. PIPERACILLIN SODIUM\TAZOBACTAM SODIUM [Concomitant]
     Active Substance: PIPERACILLIN SODIUM\TAZOBACTAM SODIUM
  79. TINZAPARIN [Concomitant]
     Active Substance: TINZAPARIN
  80. TIOTROPIUM [Concomitant]
     Active Substance: TIOTROPIUM
     Dosage: 10 MG, INHALE ONE CAPSULE DAILY, IHNALATION POWDER CAPSULE
     Route: 065
  81. VANCOMYCIN [Concomitant]
     Active Substance: VANCOMYCIN
     Indication: Vascular device infection
     Dosage: 1750 MILLIGRAM, EVEY 0.5 DAY
     Route: 042
     Dates: start: 20200612, end: 202006

REACTIONS (8)
  - Appendicitis [Recovered/Resolved]
  - Abdominal pain [Recovered/Resolved]
  - Vascular device infection [Recovered/Resolved]
  - COVID-19 [Recovered/Resolved with Sequelae]
  - COVID-19 [Recovered/Resolved]
  - Asthma [Recovered/Resolved with Sequelae]
  - Influenza [Recovered/Resolved]
  - Overdose [Unknown]

NARRATIVE: CASE EVENT DATE: 20211028
